FAERS Safety Report 4866267-0 (Version None)
Quarter: 2005Q4

REPORT INFORMATION
  Report Type: 
  Country: None (occurrence: None)
  Receive Date: 20051221
  Receipt Date: 20051208
  Transmission Date: 20060501
  Serious: Yes (Death, Congenital Anomaly)
  Sender: FDA-Public Use
  Company Number: 2005S1000441

PATIENT

DRUGS (1)
  1. SORIATANE [Suspect]
     Indication: DRUG USE FOR UNKNOWN INDICATION
     Dosage: TRPL
     Dates: start: 20040801, end: 20040101

REACTIONS (8)
  - CONGENITAL ANOMALY [None]
  - KIDNEY MALFORMATION [None]
  - PREGNANCY OF PARTNER [None]
  - PULMONARY MALFORMATION [None]
  - STILLBIRTH [None]
  - TOE DEFORMITY [None]
  - TRANSMISSION OF DRUG VIA SEMEN [None]
  - TRISOMY 21 [None]
